FAERS Safety Report 17441091 (Version 1)
Quarter: 2020Q1

REPORT INFORMATION
  Report Type: Spontaneous
  Country: JP (occurrence: JP)
  Receive Date: 20200220
  Receipt Date: 20200220
  Transmission Date: 20200409
  Serious: Yes (Hospitalization, Other)
  Sender: FDA-Public Use
  Company Number: JP-PFIZER INC-2020066157

PATIENT
  Age: 8 Year
  Sex: Male

DRUGS (21)
  1. METHOTREXATE. [Suspect]
     Active Substance: METHOTREXATE
     Indication: ACUTE LYMPHOCYTIC LEUKAEMIA
     Dosage: UNK, CYCLIC, ((3 G/M2 CONTINUOUS INFUSION OVER 24 HR, DAYS 1, 8, 15) CONSOLIDATION THERAPY)
  2. DOXORUBICIN HCL [Suspect]
     Active Substance: DOXORUBICIN HYDROCHLORIDE
     Indication: ACUTE LYMPHOCYTIC LEUKAEMIA
     Dosage: 20 MG/M2, CYCLIC, ((20 MG/M2, DAYS 8, 15), INDUCTION THERAPY)
  3. PREDNISOLONE. [Suspect]
     Active Substance: PREDNISOLONE
     Indication: ACUTE LYMPHOCYTIC LEUKAEMIA
     Dosage: 60 MG/M2, CYCLIC, (DAYS 1-28; INDUCTION THERAPY)
     Route: 048
  4. CYCLOPHOSPHAMIDE. [Suspect]
     Active Substance: CYCLOPHOSPHAMIDE
     Indication: ACUTE LYMPHOCYTIC LEUKAEMIA
     Dosage: 1000 MG/M2, CYCLIC, ((1,000 MG/M2, DAYS 2),INDUCTION THERAPY)
  5. METHOTREXATE. [Suspect]
     Active Substance: METHOTREXATE
     Dosage: 12.5 MG/M2, CYCLIC (GIVEN 8 TIMES BY THIS TIME)
     Route: 037
  6. L-ASPARAGINASE [Suspect]
     Active Substance: ASPARAGINASE
     Dosage: UNK, CYCLIC, (REINDUCTION THERAPY; 2 CYCLES, 2-WEEK COURSE)
  7. CYTOSINE ARABINOSIDE [Suspect]
     Active Substance: CYTARABINE
     Indication: ACUTE LYMPHOCYTIC LEUKAEMIA
     Dosage: 75 MG/M2, CYCLIC (DAYS 1-5, 8-12, 15-19),CONSOLIDATION THERAPY)
     Route: 037
  8. CYTOSINE ARABINOSIDE [Suspect]
     Active Substance: CYTARABINE
     Dosage: UNK, CYCLIC, (1 CYCLE OF A 2-WEEK COURSE OF RECONSOLIDATION)
  9. PREDNISOLONE. [Suspect]
     Active Substance: PREDNISOLONE
     Dosage: UNK, CYCLIC, (REINDUCTION THERAPY; 2 CYCLES, 2-WEEK COURSE)
  10. CYCLOPHOSPHAMIDE. [Suspect]
     Active Substance: CYCLOPHOSPHAMIDE
     Dosage: 1000 MG/M2, CYCLIC, (DAYS 1, CONSOLIDATION THERAPY)
  11. DOXORUBICIN HCL [Suspect]
     Active Substance: DOXORUBICIN HYDROCHLORIDE
     Dosage: UNK, CYCLIC, (REINDUCTION THERAPY; 2 CYCLES, 2-WEEK COURSE)
  12. CYTOSINE ARABINOSIDE [Suspect]
     Active Substance: CYTARABINE
     Dosage: 25 MG/M2, CYCLIC (GIVEN 8 TIMES BY THIS TIME)
  13. CYTOSINE ARABINOSIDE [Suspect]
     Active Substance: CYTARABINE
     Dosage: UNK, CYCLIC  (2 G/M2 OVER 2 HR Q 12 HR, 4 DOSES)
  14. VINCRISTINE [Suspect]
     Active Substance: VINCRISTINE
     Indication: ACUTE LYMPHOCYTIC LEUKAEMIA
     Dosage: 1.5 MG/M2, CYCLIC, ((DAYS 1, 8, 15, 22, 29); INDUCTION THERAPY)
  15. CYCLOPHOSPHAMIDE. [Suspect]
     Active Substance: CYCLOPHOSPHAMIDE
     Dosage: 1000 MG/M2, CYCLIC, ((1,000 MG/M2, DAYS 2), UNK, CYCLIC, (1 CYCLE OF A 2-WEEK COURSE, RECONSOLIDATI)
  16. L-ASPARAGINASE [Suspect]
     Active Substance: ASPARAGINASE
     Indication: ACUTE LYMPHOCYTIC LEUKAEMIA
     Dosage: UNK, CYCLIC (10,000 U/M2, DAYS 8-11, 15-18, 22-25),INDUCTION THERAPY)
  17. HYDROCORTISONE. [Suspect]
     Active Substance: HYDROCORTISONE
     Indication: ACUTE LYMPHOCYTIC LEUKAEMIA
     Dosage: 25 MG/M2, CYCLIC  (GIVEN 8 TIMES BY THIS TIME)
     Route: 037
  18. VINCRISTINE [Suspect]
     Active Substance: VINCRISTINE
     Dosage: UNK, CYCLIC, (REINDUCTION THERAPY; 2 CYCLES, 2-WEEK COURSE)
  19. 6-MERCAPTOPURINE MONOHYDRATE [Suspect]
     Active Substance: MERCAPTOPURINE
     Dosage: 60 MG/M2, CYCLIC (1 CYCLE OF A 2-WEEK COURSE OF RECONSOLIDATION)
     Route: 048
  20. L-ASPARAGINASE [Suspect]
     Active Substance: ASPARAGINASE
     Dosage: UNK, CYCLIC (10,000 U/M2, 1 DOSE AFTER COMPLETION OF 4TH DOSE OF ARA-C)
  21. 6-MERCAPTOPURINE MONOHYDRATE [Suspect]
     Active Substance: MERCAPTOPURINE
     Indication: ACUTE LYMPHOCYTIC LEUKAEMIA
     Dosage: 60 MG/M2, CYCLIC (DAYS 1-21, CONSOLIDATION THERAPY)
     Route: 048

REACTIONS (1)
  - Acute myeloid leukaemia [Unknown]
